FAERS Safety Report 4353213-1 (Version None)
Quarter: 2004Q2

REPORT INFORMATION
  Report Type: 
  Country: None (occurrence: None)
  Receive Date: 20040503
  Receipt Date: 20040503
  Transmission Date: 20050107
  Serious: Yes (Hospitalization)
  Sender: FDA-Public Use
  Company Number: None

PATIENT
  Age: 78 Year
  Sex: Male

DRUGS (10)
  1. REFECOXIB [Suspect]
     Indication: PAIN
     Dosage: 12.5 MG QD
  2. LISINOPRIL [Suspect]
     Indication: HYPERTENSION
     Dosage: 20 MG QD
     Dates: start: 20030801, end: 20040301
  3. LOVASTATIN [Concomitant]
  4. METOPROLOL [Concomitant]
  5. ASPIRIN [Concomitant]
  6. MISOPROSTOL [Concomitant]
  7. HYDROCHLOROTHIAZIDE [Concomitant]
  8. METHOCARBAMOL [Concomitant]
  9. OXYBUTYNIN [Concomitant]
  10. RANITIDINE [Concomitant]

REACTIONS (1)
  - HYPERKALAEMIA [None]
